FAERS Safety Report 7640128-6 (Version None)
Quarter: 2011Q3

REPORT INFORMATION
  Report Type: 
  Country: None (occurrence: None)
  Receive Date: 20110728
  Receipt Date: 20110708
  Transmission Date: 20111222
  Serious: No
  Sender: FDA-Public Use
  Company Number: US-BAYER-2011-060357

PATIENT
  Age: 70 Year
  Weight: 61 kg

DRUGS (3)
  1. LIPITOR [Concomitant]
  2. ALEVE (CAPLET) [Suspect]
     Indication: BACK PAIN
     Dosage: 1 DF, QD
     Route: 048
     Dates: start: 20110706, end: 20110706
  3. EMBOLEX [Concomitant]

REACTIONS (3)
  - OESOPHAGEAL PAIN [None]
  - NAUSEA [None]
  - VOMITING [None]
